FAERS Safety Report 10011882 (Version 1)
Quarter: 2014Q1

REPORT INFORMATION
  Report Type: Spontaneous
  Country: US (occurrence: US)
  Receive Date: 20140314
  Receipt Date: 20140314
  Transmission Date: 20141002
  Serious: No
  Sender: FDA-Public Use
  Company Number: US-009507513-1402USA013424

PATIENT
  Age: 23 Year
  Sex: Female
  Weight: 58.96 kg

DRUGS (2)
  1. NEXPLANON [Suspect]
     Dosage: 1 ROD
     Route: 058
     Dates: start: 20130321
  2. TRAMADOL HYDROCHLORIDE [Concomitant]

REACTIONS (8)
  - Device deployment issue [Unknown]
  - Complication of device removal [Unknown]
  - Device dislocation [Unknown]
  - Mood swings [Unknown]
  - Menstruation irregular [Unknown]
  - Libido decreased [Unknown]
  - Medical device complication [Unknown]
  - Anxiety [Unknown]
